FAERS Safety Report 11062009 (Version 1)
Quarter: 2015Q2

REPORT INFORMATION
  Report Type: Spontaneous
  Country: DE (occurrence: None)
  Receive Date: 20150422
  Receipt Date: 20150422
  Transmission Date: 20150821
  Serious: Yes (Life-Threatening)
  Sender: FDA-Public Use
  Company Number: 2826873

PATIENT
  Age: 50 Year
  Sex: Female
  Weight: 156 kg

DRUGS (3)
  1. PACLITAXEL. [Concomitant]
     Active Substance: PACLITAXEL
  2. BEVACIZUMAB [Concomitant]
     Active Substance: BEVACIZUMAB
  3. CARBOPLATIN. [Suspect]
     Active Substance: CARBOPLATIN
     Indication: PRODUCT USED FOR UNKNOWN INDICATION
     Dosage: (NOT OTHERWISE SPECIFIED)
     Route: 042

REACTIONS (3)
  - Oxygen saturation decreased [None]
  - Lung disorder [None]
  - Tachycardia [None]

NARRATIVE: CASE EVENT DATE: 2015
